FAERS Safety Report 7623313-9 (Version None)
Quarter: 2011Q3

REPORT INFORMATION
  Report Type: 
  Country: None (occurrence: None)
  Receive Date: 20110720
  Receipt Date: 20110711
  Transmission Date: 20111222
  Serious: Yes (Hospitalization)
  Sender: FDA-Public Use
  Company Number: US-ASTRAZENECA-2011SE41053

PATIENT
  Age: 66 Year
  Sex: Female

DRUGS (12)
  1. SEROQUEL [Suspect]
     Route: 048
  2. LISINOPRIL [Concomitant]
     Indication: HYPERTENSION
  3. SEROQUEL [Suspect]
     Indication: BIPOLAR DISORDER
     Dosage: DAILY
     Route: 048
  4. FOSAMAX [Concomitant]
  5. STOOL SOFTENER [Concomitant]
  6. SENNA [Concomitant]
  7. ALPRAZOLAM [Concomitant]
     Indication: ANXIETY
  8. LANTUS [Concomitant]
  9. LOVASA [Concomitant]
  10. JANUVIA [Concomitant]
  11. LYRICA [Concomitant]
  12. ALPRAZOLAM [Concomitant]
     Indication: TENSION HEADACHE

REACTIONS (5)
  - DRUG INEFFECTIVE [None]
  - INCORRECT DOSE ADMINISTERED [None]
  - THINKING ABNORMAL [None]
  - URINARY TRACT INFECTION [None]
  - BIPOLAR DISORDER [None]
